FAERS Safety Report 5705074-3 (Version None)
Quarter: 2008Q2

REPORT INFORMATION
  Report Type: 
  Country: None (occurrence: None)
  Receive Date: 20080410
  Receipt Date: 20080325
  Transmission Date: 20081010
  Serious: Yes (Hospitalization, Other)
  Sender: FDA-Public Use
  Company Number: 002#2#2008-00159

PATIENT
  Age: 54 Year
  Sex: Male
  Weight: 74.8435 kg

DRUGS (10)
  1. NEUPRO [Suspect]
     Indication: PARKINSON'S DISEASE
     Dosage: 2MG/24H,1 IN 1 D,TRANSDERMAL; 4MG/24H,1 IN 1 D,TRANSDERMAL; 6MG/24H,1 IN 1 D,TRANSDERMAL; 1 IN 1 D,T
     Route: 062
     Dates: start: 20070901, end: 20071001
  2. NEUPRO [Suspect]
     Indication: PARKINSON'S DISEASE
     Dosage: 2MG/24H,1 IN 1 D,TRANSDERMAL; 4MG/24H,1 IN 1 D,TRANSDERMAL; 6MG/24H,1 IN 1 D,TRANSDERMAL; 1 IN 1 D,T
     Route: 062
     Dates: start: 20071001, end: 20071201
  3. NEUPRO [Suspect]
     Indication: PARKINSON'S DISEASE
     Dosage: 2MG/24H,1 IN 1 D,TRANSDERMAL; 4MG/24H,1 IN 1 D,TRANSDERMAL; 6MG/24H,1 IN 1 D,TRANSDERMAL; 1 IN 1 D,T
     Route: 062
     Dates: start: 20071201, end: 20080301
  4. NEUPRO [Suspect]
     Indication: PARKINSON'S DISEASE
     Dosage: 2MG/24H,1 IN 1 D,TRANSDERMAL; 4MG/24H,1 IN 1 D,TRANSDERMAL; 6MG/24H,1 IN 1 D,TRANSDERMAL; 1 IN 1 D,T
     Route: 062
     Dates: start: 20080301
  5. ASPIRIN [Concomitant]
  6. LOPRESSOR [Concomitant]
  7. ZOCOR [Concomitant]
  8. PEPCID [Concomitant]
  9. PARCOPA [Concomitant]
  10. STALEVO 100 [Concomitant]

REACTIONS (6)
  - ARTERIAL OCCLUSIVE DISEASE [None]
  - CHEST PAIN [None]
  - FALL [None]
  - HALLUCINATIONS, MIXED [None]
  - OCULAR HYPERAEMIA [None]
  - ULCERATIVE KERATITIS [None]
